FAERS Safety Report 5511232-3 (Version None)
Quarter: 2007Q4

REPORT INFORMATION
  Report Type: 
  Country: None (occurrence: None)
  Receive Date: 20071109
  Receipt Date: 20071102
  Transmission Date: 20080405
  Serious: Yes (Hospitalization)
  Sender: FDA-Public Use
  Company Number: DE-BRISTOL-MYERS SQUIBB COMPANY-13941398

PATIENT
  Age: 64 Year
  Sex: Male

DRUGS (3)
  1. CETUXIMAB [Suspect]
     Indication: NON-SMALL CELL LUNG CANCER
     Dosage: CETUXIMAB 2MG/ML. THERAPY ONGOING. FIRST INFUSION ON 23JUL2007; DOSAGE OF 400MG/M2 1 IN 1 WEEK.
     Route: 042
     Dates: start: 20071005, end: 20071005
  2. CARBOPLATIN [Suspect]
     Indication: NON-SMALL CELL LUNG CANCER
     Dosage: 1 DOSAGE FORM = AUC 5.
     Route: 042
     Dates: start: 20070928, end: 20070928
  3. GEMCITABINE [Suspect]
     Indication: NON-SMALL CELL LUNG CANCER
     Dosage: MOST RECENT INFUSION ON 05/OCT/2007
     Route: 042
     Dates: start: 20071005, end: 20071005

REACTIONS (1)
  - ANAEMIA [None]
